FAERS Safety Report 8289587-9 (Version None)
Quarter: 2012Q2

REPORT INFORMATION
  Report Type: 
  Country: None (occurrence: None)
  Receive Date: 20120417
  Receipt Date: 20120409
  Transmission Date: 20120825
  Serious: Yes (Other)
  Sender: FDA-Public Use
  Company Number: US-BAYER-2011-081741

PATIENT
  Age: 23 Year
  Sex: Female
  Weight: 86.168 kg

DRUGS (9)
  1. YASMIN [Suspect]
     Indication: POLYCYSTIC OVARIES
     Dosage: UNK
     Dates: start: 20071003, end: 20090928
  2. GLUCOPHAGE [Concomitant]
  3. NEXIUM [Concomitant]
     Dosage: UNK
  4. DROSPIRENONE AND ETHINYL ESTRADIOL [Suspect]
     Indication: POLYCYSTIC OVARIES
     Dosage: UNK
     Dates: start: 20071003, end: 20090928
  5. THYROID THERAPY [Concomitant]
  6. YAZ [Suspect]
     Indication: POLYCYSTIC OVARIES
     Dosage: UNK
     Dates: start: 20071003, end: 20090928
  7. NSAID'S [Concomitant]
     Dosage: OCCASIONAL, UNK
  8. METFORMIN HCL [Concomitant]
     Indication: POLYCYSTIC OVARIES
  9. OMEPRAZOLE [Concomitant]
     Indication: GASTROOESOPHAGEAL REFLUX DISEASE
     Dosage: UNK

REACTIONS (4)
  - INJURY [None]
  - CHOLECYSTITIS ACUTE [None]
  - PAIN [None]
  - GALLBLADDER INJURY [None]
